FAERS Safety Report 25117800 (Version 3)
Quarter: 2025Q3

REPORT INFORMATION
  Report Type: Spontaneous
  Country: US (occurrence: US)
  Receive Date: 20250325
  Receipt Date: 20250919
  Transmission Date: 20251020
  Serious: No
  Sender: TEVA
  Company Number: US-TEVA-VS-3308326

PATIENT
  Age: 55 Year
  Sex: Female
  Weight: 74.84 kg

DRUGS (1)
  1. AJOVY [Suspect]
     Active Substance: FREMANEZUMAB-VFRM
     Indication: Migraine
     Dosage: 225/1.5MG/ML
     Route: 065
     Dates: start: 20241218

REACTIONS (7)
  - Contusion [Unknown]
  - Wrong technique in product usage process [Unknown]
  - Injection site rash [Unknown]
  - Injection site pruritus [Unknown]
  - Injection site urticaria [Recovered/Resolved]
  - Therapeutic response shortened [Unknown]
  - Injection site erythema [Recovered/Resolved]
